FAERS Safety Report 7827749-2 (Version None)
Quarter: 2011Q4

REPORT INFORMATION
  Report Type: 
  Country: None (occurrence: None)
  Receive Date: 20111020
  Receipt Date: 20111007
  Transmission Date: 20120403
  Serious: Yes (Other)
  Sender: FDA-Public Use
  Company Number: GB-SANOFI-AVENTIS-2011SA063844

PATIENT
  Age: 81 Year
  Sex: Male

DRUGS (2)
  1. MULTAQ [Suspect]
     Route: 065
     Dates: start: 20110201, end: 20110601
  2. AMIODARONE HCL [Concomitant]
     Route: 065
     Dates: start: 20100921, end: 20110215

REACTIONS (6)
  - CONDITION AGGRAVATED [None]
  - DYSPNOEA [None]
  - WEIGHT DECREASED [None]
  - PULMONARY FIBROSIS [None]
  - UNDERDOSE [None]
  - COUGH [None]
